FAERS Safety Report 23127296 (Version 1)
Quarter: 2023Q4

REPORT INFORMATION
  Report Type: Spontaneous
  Country: US (occurrence: US)
  Receive Date: 20231031
  Receipt Date: 20231031
  Transmission Date: 20240109
  Serious: Yes (Hospitalization, Other)
  Sender: FDA-Public Use
  Company Number: US-STRIDES ARCOLAB LIMITED-2023SP016163

PATIENT
  Age: 22 Year

DRUGS (11)
  1. GABAPENTIN [Suspect]
     Active Substance: GABAPENTIN
     Indication: Migraine
     Dosage: 100 MG, THREE TIMES A DAY
     Route: 065
     Dates: start: 20220112
  2. GABAPENTIN [Suspect]
     Active Substance: GABAPENTIN
     Dosage: 300 MG, THREE TIMES A DAY, THE DOSE OF GABAPENTIN WAS INCREASED FOR 54 DAYS
     Route: 065
     Dates: start: 20220210
  3. GABAPENTIN [Suspect]
     Active Substance: GABAPENTIN
     Dosage: 200 MG, THREE TIMES A DAY, GABAPENTIN TAPER WAS BEGUN PER PATIENT REQUEST SECONDARY TO LACK OF EFFIC
     Route: 065
     Dates: start: 202204
  4. GABAPENTIN [Suspect]
     Active Substance: GABAPENTIN
     Dosage: 300 MILLIGRAM, THREE TIMES A DAY
     Route: 065
     Dates: start: 202204
  5. AMANTADINE [Suspect]
     Active Substance: AMANTADINE
     Indication: Post-traumatic headache
     Dosage: 100 MILLIGRAM, BID
     Route: 065
     Dates: start: 20220405
  6. DULOXETINE [Suspect]
     Active Substance: DULOXETINE
     Indication: Major depression
     Dosage: 40 MILLIGRAM, BID
     Route: 065
     Dates: start: 20211229
  7. DULOXETINE [Suspect]
     Active Substance: DULOXETINE
     Dosage: 40 MILLIGRAM, QD, RESTARTED LOWER DOSE OF 40 MG ONCE A DAY.
     Route: 065
     Dates: start: 202204
  8. BUPROPION [Suspect]
     Active Substance: BUPROPION
     Indication: Major depression
     Dosage: 300 MILLIGRAM, QD
     Route: 065
     Dates: start: 20211229
  9. BUPROPION [Suspect]
     Active Substance: BUPROPION
     Dosage: 450 MILLIGRAM, QD, THE PATIENT HAD BEEN ON THE INCREASED DOSE OF BUPROPION 450 MG FOR 35 DAYS
     Route: 065
     Dates: start: 20220301
  10. ONDANSETRON [Suspect]
     Active Substance: ONDANSETRON
     Indication: Nausea
     Dosage: 20 DOSAGE FORM, 20 TABLETS
     Route: 065
  11. BOTULINUM TOXIN NOS [Concomitant]
     Active Substance: BOTULINUM TOXIN NOS
     Indication: Post-traumatic headache
     Dosage: UNK
     Route: 065

REACTIONS (3)
  - Serotonin syndrome [Recovered/Resolved]
  - Therapy partial responder [Unknown]
  - Off label use [Unknown]

NARRATIVE: CASE EVENT DATE: 20220101
